FAERS Safety Report 9851064 (Version 1)
Quarter: 2014Q1

REPORT INFORMATION
  Report Type: Spontaneous
  Country: US (occurrence: US)
  Receive Date: 20140128
  Receipt Date: 20140128
  Transmission Date: 20141002
  Serious: No
  Sender: FDA-Public Use
  Company Number: US-DYAX CORP.-2013DX000156

PATIENT
  Sex: Female

DRUGS (3)
  1. KALBITOR [Suspect]
     Indication: HEREDITARY ANGIOEDEMA
     Route: 065
     Dates: start: 2013, end: 2013
  2. KALBITOR [Suspect]
     Route: 065
  3. KALBITOR [Suspect]

REACTIONS (2)
  - Throat tightness [Unknown]
  - Emotional distress [Unknown]
